FAERS Safety Report 5763893-1 (Version None)
Quarter: 2008Q2

REPORT INFORMATION
  Report Type: 
  Country: None (occurrence: None)
  Receive Date: 20080602
  Receipt Date: 20080128
  Transmission Date: 20081010
  Serious: Yes (Other)
  Sender: FDA-Public Use
  Company Number: PHEH2008US00699

PATIENT
  Sex: Female
  Weight: 81.2 kg

DRUGS (3)
  1. TEKTURNA [Suspect]
     Indication: PROTEINURIA
     Dosage: 150 MG, QD, ORAL
     Route: 048
     Dates: start: 20070712, end: 20071112
  2. ACE INHIBITOR NOS (NO INGREDIENTS/SUBSTANCES) [Concomitant]
  3. ANGIOTENSIN II ANTAGONISTS (NO INGREDIENTS/SUBSTANCES) [Concomitant]

REACTIONS (4)
  - ANAEMIA [None]
  - ANGIOEDEMA [None]
  - OEDEMA PERIPHERAL [None]
  - SWELLING FACE [None]
